FAERS Safety Report 16268268 (Version 12)
Quarter: 2021Q4

REPORT INFORMATION
  Report Type: Spontaneous
  Country: CA (occurrence: CA)
  Receive Date: 20190503
  Receipt Date: 20211116
  Transmission Date: 20220303
  Serious: Yes (Other)
  Sender: FDA-Public Use
  Company Number: CA-CELLTRION INC.-2019CA017838

PATIENT

DRUGS (37)
  1. INFLECTRA [Suspect]
     Active Substance: INFLIXIMAB-DYYB
     Indication: Psoriatic arthropathy
     Dosage: 484 MG (5 MG/KG), AT 0,2,6 WEEKS, THEN EVERY 8 WEEKS
     Route: 042
  2. INFLECTRA [Suspect]
     Active Substance: INFLIXIMAB-DYYB
     Dosage: 484 MG, AT 0, 2, 6 WEEKS, THEN EVERY 8 WEEKS
     Route: 042
     Dates: start: 20181115, end: 20190509
  3. INFLECTRA [Suspect]
     Active Substance: INFLIXIMAB-DYYB
     Dosage: 5 MG/KG, EVERY 8 WEEKS
     Route: 042
     Dates: start: 20181115, end: 20190509
  4. INFLECTRA [Suspect]
     Active Substance: INFLIXIMAB-DYYB
     Dosage: 484 MG, AT 0, 2, 6 WEEKS, THEN EVERY 8 WEEKS
     Route: 042
     Dates: start: 20181127
  5. INFLECTRA [Suspect]
     Active Substance: INFLIXIMAB-DYYB
     Dosage: 484 MG, AT 0, 2, 6 WEEKS, THEN EVERY 8 WEEKS
     Route: 042
     Dates: start: 20190103
  6. INFLECTRA [Suspect]
     Active Substance: INFLIXIMAB-DYYB
     Dosage: 484 MG, AT 0, 2, 6 WEEKS, THEN EVERY 8 WEEKS
     Route: 042
     Dates: start: 20190226
  7. INFLECTRA [Suspect]
     Active Substance: INFLIXIMAB-DYYB
     Dosage: 484 MG, AT 0, 2, 6 WEEKS, THEN EVERY 8 WEEKS
     Route: 042
     Dates: start: 20190509
  8. INFLECTRA [Suspect]
     Active Substance: INFLIXIMAB-DYYB
     Dosage: 5 MG/KG, EVERY 8 WEEKS
     Route: 042
     Dates: start: 20190703, end: 20200302
  9. INFLECTRA [Suspect]
     Active Substance: INFLIXIMAB-DYYB
     Dosage: 484 MG, AT 0, 2, 6 WEEKS, THEN EVERY 8 WEEKS
     Route: 042
     Dates: start: 20190703
  10. INFLECTRA [Suspect]
     Active Substance: INFLIXIMAB-DYYB
     Dosage: 484 MG, AT 0, 2, 6 WEEKS, THEN EVERY 8 WEEKS
     Route: 042
     Dates: start: 20190827
  11. INFLECTRA [Suspect]
     Active Substance: INFLIXIMAB-DYYB
     Dosage: 484 MG, AT 0, 2, 6 WEEKS, THEN EVERY 8 WEEKS
     Route: 042
     Dates: start: 20191108
  12. INFLECTRA [Suspect]
     Active Substance: INFLIXIMAB-DYYB
     Dosage: 484 MG, AT 0, 2, 6 WEEKS, THEN EVERY 8 WEEKS
     Route: 042
     Dates: start: 20200106
  13. INFLECTRA [Suspect]
     Active Substance: INFLIXIMAB-DYYB
     Dosage: 5 MG/KG, EVERY 8 WEEKS
     Route: 042
     Dates: start: 20200302
  14. INFLECTRA [Suspect]
     Active Substance: INFLIXIMAB-DYYB
     Dosage: 500 MG EVERY 8 WEEKS
     Route: 042
     Dates: start: 20200427, end: 20200427
  15. INFLECTRA [Suspect]
     Active Substance: INFLIXIMAB-DYYB
     Dosage: 5 MG/KG, EVERY 8 WEEKS
     Route: 042
     Dates: start: 20200428
  16. INFLECTRA [Suspect]
     Active Substance: INFLIXIMAB-DYYB
     Dosage: 500 MG EVERY 6 WEEKS
     Route: 042
     Dates: start: 20200610
  17. INFLECTRA [Suspect]
     Active Substance: INFLIXIMAB-DYYB
     Dosage: 500 MG EVERY 6 WEEKS
     Route: 042
     Dates: start: 20210512
  18. INFLECTRA [Suspect]
     Active Substance: INFLIXIMAB-DYYB
     Dosage: 500 MG EVERY 6 WEEKS
     Route: 042
     Dates: start: 20210623
  19. INFLECTRA [Suspect]
     Active Substance: INFLIXIMAB-DYYB
     Dosage: 500 MG EVERY 6 WEEKS
     Route: 042
     Dates: start: 20210804
  20. SYNTHROID [Concomitant]
     Active Substance: LEVOTHYROXINE SODIUM
     Dosage: 125 MG, DAILY
  21. TRIAZIDE [Concomitant]
     Dosage: 50/25 MG, DAILY
  22. SERC (BETAHISTINE HYDROCHLORIDE) [Concomitant]
     Active Substance: BETAHISTINE HYDROCHLORIDE
     Dosage: 16 MG,  (1-3 TIMES) AS NEEDED
  23. CLONAZEPAM [Concomitant]
     Active Substance: CLONAZEPAM
     Dosage: 0.25 MG, UNK(BEDTIME)
  24. CLONAZEPAM [Concomitant]
     Active Substance: CLONAZEPAM
     Dosage: 0.5 MG
     Route: 048
  25. OZEMPIC [Concomitant]
     Active Substance: SEMAGLUTIDE
     Dosage: UNK
  26. NITROFURANTOIN [Concomitant]
     Active Substance: NITROFURANTOIN
     Indication: Kidney infection
     Dosage: 15 MG, DAILY
     Route: 065
  27. NITROFURANTOIN [Concomitant]
     Active Substance: NITROFURANTOIN
     Indication: Cystitis
     Dosage: UNK
  28. VITAMIN D NOS [Concomitant]
     Active Substance: VITAMIN D NOS
     Dosage: 4000 MG, DAILY
     Route: 065
  29. VITAMIN D NOS [Concomitant]
     Active Substance: VITAMIN D NOS
     Dosage: 400 MG, DAILY
     Route: 065
  30. NAPROXEN [Concomitant]
     Active Substance: NAPROXEN
     Indication: Psoriatic arthropathy
     Dosage: 500 MG, 2X/DAY
     Route: 065
  31. NAPROXEN [Concomitant]
     Active Substance: NAPROXEN
     Indication: Arthralgia
     Dosage: UNK
  32. CANNABIDIOL\HERBALS [Concomitant]
     Active Substance: CANNABIDIOL\HERBALS
     Dosage: UNK
     Route: 065
  33. CYTOMEL [Concomitant]
     Active Substance: LIOTHYRONINE SODIUM
     Dosage: 5 UG
  34. LINACLOTIDE [Concomitant]
     Active Substance: LINACLOTIDE
     Dosage: 290 UG
  35. ERGOCALCIFEROL [Concomitant]
     Active Substance: ERGOCALCIFEROL
     Dosage: 1000 IU (25 MCG)
     Route: 048
  36. VICTOZA [Concomitant]
     Active Substance: LIRAGLUTIDE
     Dosage: 6 MG/ML
     Route: 065
  37. HYDROCHLOROTHIAZIDE\TRIAMTERENE [Concomitant]
     Active Substance: HYDROCHLOROTHIAZIDE\TRIAMTERENE
     Dosage: 50MG - 250MG

REACTIONS (25)
  - Lower respiratory tract infection [Unknown]
  - Psoriatic arthropathy [Not Recovered/Not Resolved]
  - Drug ineffective [Unknown]
  - Oropharyngeal pain [Unknown]
  - Ear pain [Unknown]
  - Arthralgia [Unknown]
  - Cystitis [Unknown]
  - Red blood cell sedimentation rate increased [Unknown]
  - Weight decreased [Unknown]
  - Hypertension [Unknown]
  - Red blood cell count increased [Unknown]
  - Chest pain [Unknown]
  - Urinary tract infection [Recovered/Resolved]
  - Bacterial vaginosis [Unknown]
  - Constipation [Unknown]
  - Abdominal pain [Unknown]
  - Migraine [Not Recovered/Not Resolved]
  - Asthenia [Unknown]
  - Feeling abnormal [Unknown]
  - Inappropriate schedule of product administration [Unknown]
  - Off label use [Unknown]
  - Intentional product use issue [Unknown]
  - Off label use [Unknown]
  - Pain in extremity [Unknown]
  - Abdominal pain [Not Recovered/Not Resolved]

NARRATIVE: CASE EVENT DATE: 20190103
